FAERS Safety Report 5359875-4 (Version None)
Quarter: 2007Q2

REPORT INFORMATION
  Report Type: 
  Country: None (occurrence: None)
  Receive Date: 20070530
  Receipt Date: 20070204
  Transmission Date: 20071010
  Serious: No
  Sender: FDA-Public Use
  Company Number: 2007PV029509

PATIENT
  Age: 43 Year
  Sex: Female
  Weight: 112.0385 kg

DRUGS (3)
  1. BYETTA [Suspect]
     Indication: DIABETES MELLITUS NON-INSULIN-DEPENDENT
     Dosage: 5 MCG; BID; SC
     Route: 058
     Dates: start: 20070203, end: 20070203
  2. METFORMIN HCL [Concomitant]
  3. BENTYL [Concomitant]

REACTIONS (3)
  - ERYTHEMA [None]
  - PILOERECTION [None]
  - PRURITUS GENERALISED [None]
